FAERS Safety Report 23262811 (Version 1)
Quarter: 2023Q4

REPORT INFORMATION
  Report Type: Spontaneous
  Country: US (occurrence: US)
  Receive Date: 20231205
  Receipt Date: 20231205
  Transmission Date: 20240109
  Serious: Yes (Other)
  Sender: FDA-Public Use
  Company Number: US-002147023-NVSC2023US255569

PATIENT

DRUGS (17)
  1. AFINITOR DISPERZ [Suspect]
     Active Substance: EVEROLIMUS
     Indication: Breast cancer stage IV
     Dosage: UNK
     Route: 065
     Dates: start: 20140805, end: 20160831
  2. AROMASIN [Suspect]
     Active Substance: EXEMESTANE
     Indication: Breast cancer stage IV
     Dosage: UNK
     Route: 065
     Dates: start: 20140805, end: 20160831
  3. XGEVA [Suspect]
     Active Substance: DENOSUMAB
     Indication: Breast cancer stage IV
     Dosage: UNK
     Route: 065
     Dates: start: 20140805, end: 20160831
  4. EXEMESTANE [Suspect]
     Active Substance: EXEMESTANE
     Indication: Product used for unknown indication
     Dosage: 25 MG (TABLET FOR 30 DAYS)
     Route: 048
     Dates: start: 20160831
  5. IBRANCE [Suspect]
     Active Substance: PALBOCICLIB
     Indication: Product used for unknown indication
     Dosage: 1 DOSAGE FORM, QD (FOR 21 DAYS WITH A 7 DAY REST)
     Route: 048
     Dates: start: 20191227
  6. IBRANCE [Suspect]
     Active Substance: PALBOCICLIB
     Dosage: 1 DOSAGE FORM, QD (FOR 21 DAYS WITH A 7 DAY REST)
     Route: 048
     Dates: start: 20200102
  7. IBRANCE [Suspect]
     Active Substance: PALBOCICLIB
     Dosage: 1 DOSAGE FORM, QD (FOR 21 DAYS WITH A 7 DAY REST)
     Route: 048
     Dates: start: 20210406
  8. IBRANCE [Suspect]
     Active Substance: PALBOCICLIB
     Dosage: 1 DOSAGE FORM, QD (FOR 21 DAYS WITH A 7 DAY REST)
     Route: 048
     Dates: start: 20220208
  9. IBRANCE [Suspect]
     Active Substance: PALBOCICLIB
     Dosage: 1 DOSAGE FORM, QD (FOR 21 DAYS WITH A 7 DAY REST)
     Route: 048
     Dates: start: 20230215
  10. PALBOCICLIB [Suspect]
     Active Substance: PALBOCICLIB
     Indication: Product used for unknown indication
     Dosage: 125 MG, QD (FOR 21 DAYS)
     Route: 065
     Dates: start: 20170317
  11. PALBOCICLIB [Suspect]
     Active Substance: PALBOCICLIB
     Dosage: 125 MG, QD (FOR 21 DAYS)
     Route: 048
     Dates: start: 20160831
  12. PALBOCICLIB [Suspect]
     Active Substance: PALBOCICLIB
     Dosage: 125 MG, QD (FOR 21 DAYS)
     Route: 048
     Dates: start: 20170214
  13. PALBOCICLIB [Suspect]
     Active Substance: PALBOCICLIB
     Dosage: 125 MG, QD (ONE CAPSULE PO DAILY FOR 21 DAYS)
     Route: 048
     Dates: start: 20170317
  14. PALBOCICLIB [Suspect]
     Active Substance: PALBOCICLIB
     Dosage: 125 MG, QD (ONE CAPSULE PO DAILY FOR 21 DAYS)
     Route: 048
     Dates: start: 20171215
  15. PALBOCICLIB [Suspect]
     Active Substance: PALBOCICLIB
     Dosage: 1 DOSAGE FORM, QD (ONE CAPSULE PO DAILY)
     Route: 048
     Dates: start: 20171215
  16. PALBOCICLIB [Suspect]
     Active Substance: PALBOCICLIB
     Dosage: 1 DOSAGE FORM, QD (FOR 21 DAYS WITH A 7 DAY REST)
     Route: 048
     Dates: start: 20191223
  17. FASLODEX [Suspect]
     Active Substance: FULVESTRANT
     Indication: Breast cancer stage IV
     Dosage: UNK
     Route: 065
     Dates: start: 201609

REACTIONS (3)
  - Breast cancer [Unknown]
  - Nausea [Unknown]
  - Vomiting [Unknown]
